FAERS Safety Report 15295847 (Version 1)
Quarter: 2018Q3

REPORT INFORMATION
  Report Type: Spontaneous
  Country: CN (occurrence: CN)
  Receive Date: 20180820
  Receipt Date: 20180820
  Transmission Date: 20181010
  Serious: Yes (Hospitalization)
  Sender: FDA-Public Use
  Company Number: CN-MYLANLABS-2018M1061367

PATIENT
  Sex: Male

DRUGS (18)
  1. ISONIAZID. [Concomitant]
     Active Substance: ISONIAZID
     Indication: PERITONEAL TUBERCULOSIS
     Dosage: FROM 4 MARCH 2016, SAME DOSE WAS PRESCRIBED FOR ONE MORE YEAR
     Route: 065
     Dates: start: 20160130
  2. PYRAZINAMIDE. [Concomitant]
     Active Substance: PYRAZINAMIDE
     Indication: PERITONEAL TUBERCULOSIS
     Dosage: FROM 4 MARCH 2016, SAME DOSE WAS PRESCRIBED FOR THREE MORE MONTHS
     Route: 065
     Dates: start: 20160130
  3. LEVOFLOXACIN. [Concomitant]
     Active Substance: LEVOFLOXACIN
     Indication: INTESTINAL TUBERCULOSIS
  4. RIFAMPICIN [Concomitant]
     Active Substance: RIFAMPIN
     Indication: INTESTINAL TUBERCULOSIS
  5. ETHAMBUTOL [Concomitant]
     Active Substance: ETHAMBUTOL HYDROCHLORIDE
     Indication: INTESTINAL TUBERCULOSIS
  6. PREDNISONE. [Suspect]
     Active Substance: PREDNISONE
     Indication: PERITONEAL TUBERCULOSIS
     Dosage: DOSE WAS REDUCED TO 25MG ONCE DAILY
     Route: 065
     Dates: start: 20160130, end: 20160304
  7. PREDNISONE. [Suspect]
     Active Substance: PREDNISONE
     Indication: INTESTINAL TUBERCULOSIS
     Dosage: 25 MG, QD
     Route: 065
     Dates: start: 20160305, end: 20160404
  8. RIFAMPICIN [Concomitant]
     Active Substance: RIFAMPIN
     Indication: PERITONEAL TUBERCULOSIS
     Dosage: FROM 4 MARCH 2016, SAME DOSE WAS PRESCRIBED FOR ONE MORE YEAR
     Route: 065
     Dates: start: 20160130
  9. PREDNISONE. [Suspect]
     Active Substance: PREDNISONE
     Indication: PLEURISY
  10. ISONIAZID. [Concomitant]
     Active Substance: ISONIAZID
     Indication: INTESTINAL TUBERCULOSIS
  11. ETHAMBUTOL [Concomitant]
     Active Substance: ETHAMBUTOL HYDROCHLORIDE
     Indication: PERITONEAL TUBERCULOSIS
     Dosage: FROM 4 MARCH 2016, SAME DOSE WAS PRESCRIBED FOR ONE MORE YEAR
     Route: 065
     Dates: start: 20160130
  12. ETHAMBUTOL [Concomitant]
     Active Substance: ETHAMBUTOL HYDROCHLORIDE
     Indication: PLEURISY
  13. LEVOFLOXACIN. [Concomitant]
     Active Substance: LEVOFLOXACIN
     Indication: PERITONEAL TUBERCULOSIS
     Dosage: 0.4 G, QD
     Route: 065
     Dates: start: 20160130, end: 20160304
  14. PYRAZINAMIDE. [Concomitant]
     Active Substance: PYRAZINAMIDE
     Indication: PLEURISY
  15. PYRAZINAMIDE. [Concomitant]
     Active Substance: PYRAZINAMIDE
     Indication: INTESTINAL TUBERCULOSIS
  16. LEVOFLOXACIN. [Concomitant]
     Active Substance: LEVOFLOXACIN
     Indication: PLEURISY
  17. ISONIAZID. [Concomitant]
     Active Substance: ISONIAZID
     Indication: PLEURISY
  18. RIFAMPICIN [Concomitant]
     Active Substance: RIFAMPIN
     Indication: PLEURISY

REACTIONS (3)
  - Cryptococcosis [Recovered/Resolved]
  - Neoplasm [Recovered/Resolved]
  - Pneumonia cryptococcal [Recovered/Resolved]
